FAERS Safety Report 6537022-0 (Version None)
Quarter: 2010Q1

REPORT INFORMATION
  Report Type: 
  Country: None (occurrence: None)
  Receive Date: 20100108
  Receipt Date: 20091222
  Transmission Date: 20100710
  Serious: Yes (Other)
  Sender: FDA-Public Use
  Company Number: BVT-000443

PATIENT

DRUGS (1)
  1. ANAKINRA (BIOVITRUM AB.) [Suspect]
     Indication: JUVENILE ARTHRITIS

REACTIONS (1)
  - HEPATITIS ACUTE [None]
